APPROVED DRUG PRODUCT: FEBUXOSTAT
Active Ingredient: FEBUXOSTAT
Strength: 40MG
Dosage Form/Route: TABLET;ORAL
Application: A210461 | Product #001 | TE Code: AB
Applicant: MSN LABORATORIES PRIVATE LTD
Approved: Dec 30, 2019 | RLD: No | RS: No | Type: RX